FAERS Safety Report 17523747 (Version 2)
Quarter: 2020Q2

REPORT INFORMATION
  Report Type: Spontaneous
  Country: US (occurrence: US)
  Receive Date: 20200311
  Receipt Date: 20200504
  Transmission Date: 20200713
  Serious: No
  Sender: FDA-Public Use
  Company Number: NVSC2020US067147

PATIENT

DRUGS (1)
  1. BEOVU [Suspect]
     Active Substance: BROLUCIZUMAB-DBLL
     Indication: NEOVASCULAR AGE-RELATED MACULAR DEGENERATION
     Dosage: 6 MG, OTHER (1 INJECTION OS AND 2 INJECTIONS OU)
     Route: 047
     Dates: start: 20191120, end: 20200121

REACTIONS (3)
  - Vision blurred [Recovering/Resolving]
  - Iritis [Unknown]
  - Intraocular pressure increased [Unknown]
